FAERS Safety Report 5902642-0 (Version None)
Quarter: 2008Q3

REPORT INFORMATION
  Report Type: 
  Country: None (occurrence: None)
  Receive Date: 20080926
  Receipt Date: 20080922
  Transmission Date: 20090109
  Serious: Yes (Hospitalization)
  Sender: FDA-Public Use
  Company Number: GXBR2008US01874

PATIENT
  Age: 80 Year
  Sex: Female
  Weight: 70.3 kg

DRUGS (2)
  1. ATENOLOL [Suspect]
     Indication: HYPERTENSION
     Dosage: 50 MG, QD, ORAL; 50 MG, QD2SDO, ORAL
     Route: 048
     Dates: start: 20061101, end: 20061101
  2. PREDNISONE [Suspect]
     Dosage: 5 MG, ORAL
     Route: 048

REACTIONS (7)
  - ABASIA [None]
  - CEREBROVASCULAR ACCIDENT [None]
  - HEART RATE IRREGULAR [None]
  - INCORRECT DOSE ADMINISTERED [None]
  - INFLUENZA LIKE ILLNESS [None]
  - MEMORY IMPAIRMENT [None]
  - PERONEAL NERVE PALSY [None]
